FAERS Safety Report 13031890 (Version 1)
Quarter: 2016Q4

REPORT INFORMATION
  Report Type: Spontaneous
  Country: US (occurrence: US)
  Receive Date: 20161215
  Receipt Date: 20161215
  Transmission Date: 20170207
  Serious: No
  Sender: FDA-Public Use
  Company Number: US-PFIZER INC-2016232107

PATIENT
  Age: 73 Year
  Sex: Male
  Weight: 105.21 kg

DRUGS (19)
  1. LYRICA [Suspect]
     Active Substance: PREGABALIN
     Indication: PERIPHERAL VASCULAR DISORDER
     Dosage: 100 MG, DAILY
     Route: 048
     Dates: start: 2015
  2. PLAQUENIL [Concomitant]
     Active Substance: HYDROXYCHLOROQUINE SULFATE
  3. RANITIDINE. [Concomitant]
     Active Substance: RANITIDINE
     Dosage: 300 MG, DAILY
     Route: 048
  4. LATANOPROST. [Concomitant]
     Active Substance: LATANOPROST
     Dosage: 2.5 ML, DAILY (ONE DROP IN EACH EYE AT BEDTIME)
  5. CALCIUM PLUS D3 [Concomitant]
     Dosage: 1 DF, 2X/DAY
     Route: 048
  6. PREDNISONE. [Concomitant]
     Active Substance: PREDNISONE
     Dosage: 7.5 MG, DAILY (2.5MG THREE DAILY)
     Route: 048
  7. CIALIS [Concomitant]
     Active Substance: TADALAFIL
  8. METHOTREXATE. [Concomitant]
     Active Substance: METHOTREXATE
     Dosage: 10 MG, WEEKLY (2.5MG FOUR TABLETS BY MOUTH ONCE WEEKLY)
     Route: 048
  9. XALATAN [Concomitant]
     Active Substance: LATANOPROST
  10. HYDROXYCHLOROQUINE SULFATE. [Concomitant]
     Active Substance: HYDROXYCHLOROQUINE SULFATE
     Dosage: 400 MG, DAILY (200MG 2 TABLETS DAILY)
     Route: 048
  11. LYRICA [Suspect]
     Active Substance: PREGABALIN
     Indication: HERPES ZOSTER
     Dosage: 1 DF, DAILY
     Route: 048
     Dates: start: 201609, end: 20161114
  12. ASPIRIN. [Concomitant]
     Active Substance: ASPIRIN
     Dosage: 81 MG, DAILY
     Route: 048
  13. LOVASTATIN. [Concomitant]
     Active Substance: LOVASTATIN
     Dosage: 40 MG, DAILY
  14. VITAMIN D [Concomitant]
     Active Substance: CHOLECALCIFEROL
     Dosage: 1 DF, DAILY (2000)
  15. LYRICA [Suspect]
     Active Substance: PREGABALIN
     Indication: NEUROPATHY PERIPHERAL
     Dosage: 50 MG, 2X/DAY (ONE CAPSULE IN THE MORNING, AND ONE CAPSULE BEFORE BEDTIME)
     Route: 048
     Dates: start: 201607
  16. FOLIC ACID. [Concomitant]
     Active Substance: FOLIC ACID
     Dosage: 1 MG, DAILY
     Route: 048
  17. ATENOLOL. [Concomitant]
     Active Substance: ATENOLOL
     Dosage: 50 MG, DAILY
     Route: 048
  18. LISINOPRIL. [Concomitant]
     Active Substance: LISINOPRIL
     Dosage: 40 MG, DAILY
  19. CLOPIDOGREL [Concomitant]
     Active Substance: CLOPIDOGREL BISULFATE
     Dosage: 75 MG, DAILY
     Route: 048

REACTIONS (6)
  - Pain [Not Recovered/Not Resolved]
  - Insomnia [Not Recovered/Not Resolved]
  - Neuropathy peripheral [Unknown]
  - Somnolence [Recovered/Resolved]
  - Condition aggravated [Unknown]
  - Intentional product use issue [Unknown]

NARRATIVE: CASE EVENT DATE: 2016
